FAERS Safety Report 6967051-4 (Version None)
Quarter: 2010Q3

REPORT INFORMATION
  Report Type: 
  Country: None (occurrence: None)
  Receive Date: 20100907
  Receipt Date: 20100825
  Transmission Date: 20110219
  Serious: Yes (Hospitalization, Other)
  Sender: FDA-Public Use
  Company Number: US-BAYER-201026199NA

PATIENT
  Age: 28 Year
  Sex: Female
  Weight: 59 kg

DRUGS (14)
  1. YAZ [Suspect]
     Indication: PRODUCT USED FOR UNKNOWN INDICATION
     Route: 048
     Dates: start: 20080101, end: 20100101
  2. XANAX [Concomitant]
  3. ZANAFLEX [Concomitant]
  4. HYDROCODONE [Concomitant]
  5. ORTHO TRI-CYCLEN [Concomitant]
  6. DEPO-PROVERA [Concomitant]
  7. LYRICA [Concomitant]
     Dates: start: 20090819
  8. NEXIUM [Concomitant]
     Dates: start: 20090819
  9. INVEGA [Concomitant]
     Dates: start: 20090819
  10. PROVENTIL [Concomitant]
     Dates: start: 20090819
  11. SIMBICORT [Concomitant]
     Dates: start: 20090819
  12. TOPAMAX [Concomitant]
     Dates: start: 20090820
  13. ANAFRANIL [Concomitant]
     Dates: start: 20090820
  14. ROZEREM [Concomitant]
     Dates: start: 20090820

REACTIONS (9)
  - ABDOMINAL PAIN UPPER [None]
  - CHOLELITHIASIS [None]
  - DIARRHOEA [None]
  - GALLBLADDER DISORDER [None]
  - GASTROOESOPHAGEAL REFLUX DISEASE [None]
  - INJURY [None]
  - NAUSEA [None]
  - PANCREATITIS [None]
  - VOMITING [None]
